FAERS Safety Report 21474245 (Version 4)
Quarter: 2022Q4

REPORT INFORMATION
  Report Type: Report from Study
  Country: US (occurrence: US)
  Receive Date: 20221018
  Receipt Date: 20221113
  Transmission Date: 20230113
  Serious: Yes (Hospitalization)
  Sender: FDA-Public Use
  Company Number: US-GILEAD-2022-0601738

PATIENT
  Age: 39 Year
  Sex: Female

DRUGS (5)
  1. AMBRISENTAN [Suspect]
     Active Substance: AMBRISENTAN
     Indication: Pulmonary arterial hypertension
     Dosage: 5 MG, QD
     Route: 048
     Dates: start: 20200608
  2. OPSUMIT [Concomitant]
     Active Substance: MACITENTAN
     Indication: Product used for unknown indication
  3. REMODULIN [Concomitant]
     Active Substance: TREPROSTINIL
     Indication: Product used for unknown indication
  4. ADEMPAS [Concomitant]
     Active Substance: RIOCIGUAT
     Indication: Product used for unknown indication
  5. LETAIRIS [Suspect]
     Active Substance: AMBRISENTAN
     Dates: start: 20200608

REACTIONS (13)
  - Dehydration [Unknown]
  - Renal disorder [Unknown]
  - COVID-19 [Recovered/Resolved]
  - Unevaluable event [Unknown]
  - Device issue [Unknown]
  - Unevaluable event [Unknown]
  - Malaise [Unknown]
  - Malaise [Unknown]
  - Headache [Unknown]
  - Nasal congestion [Unknown]
  - Abdominal discomfort [Unknown]
  - Nausea [Unknown]
  - Colitis [Unknown]

NARRATIVE: CASE EVENT DATE: 20221016
